FAERS Safety Report 17131129 (Version 1)
Quarter: 2019Q4

REPORT INFORMATION
  Report Type: Spontaneous
  Country: US (occurrence: US)
  Receive Date: 20191209
  Receipt Date: 20191209
  Transmission Date: 20200122
  Serious: Yes (Other)
  Sender: FDA-Public Use
  Company Number: US-ARRAY-2019-06891

PATIENT

DRUGS (2)
  1. MEKTOVI [Suspect]
     Active Substance: BINIMETINIB
     Indication: MALIGNANT MELANOMA
     Dosage: UNK
     Route: 048
  2. MEKTOVI [Suspect]
     Active Substance: BINIMETINIB
     Dosage: 15 MG, QD
     Route: 048
     Dates: start: 20191007

REACTIONS (2)
  - Cardiac failure [Unknown]
  - Off label use [Unknown]

NARRATIVE: CASE EVENT DATE: 20191007
